FAERS Safety Report 11976676 (Version 2)
Quarter: 2016Q1

REPORT INFORMATION
  Report Type: Spontaneous
  Country: GB (occurrence: GB)
  Receive Date: 20160129
  Receipt Date: 20160325
  Transmission Date: 20160526
  Serious: Yes (Other)
  Sender: FDA-Public Use
  Company Number: GB-SUN PHARMACEUTICAL INDUSTRIES LTD-2016R1-110586

PATIENT
  Age: 61 Year
  Sex: Male

DRUGS (11)
  1. CLOPIDOGREL [Suspect]
     Active Substance: CLOPIDOGREL BISULFATE
     Indication: CORONARY ARTERY STENOSIS
     Dosage: UNK
     Route: 065
  2. HEPARIN [Suspect]
     Active Substance: HEPARIN SODIUM
     Indication: CORONARY ARTERY STENOSIS
     Dosage: UNK
     Route: 065
  3. BOSENTAN [Concomitant]
     Active Substance: BOSENTAN
     Indication: PULMONARY HYPERTENSION
  4. RANOLAZINE [Concomitant]
     Active Substance: RANOLAZINE
     Indication: ANGINA PECTORIS
     Dosage: UNK
     Route: 065
  5. ASPIRIN. [Suspect]
     Active Substance: ASPIRIN
     Indication: CORONARY ARTERY STENOSIS
     Dosage: UNK
     Route: 065
  6. BOSENTAN [Concomitant]
     Active Substance: BOSENTAN
     Indication: RIGHT-TO-LEFT CARDIAC SHUNT
  7. SPIRONOLACTONE. [Concomitant]
     Active Substance: SPIRONOLACTONE
     Indication: PRODUCT USED FOR UNKNOWN INDICATION
     Dosage: UNK
     Route: 065
  8. NICORANDIL [Concomitant]
     Active Substance: NICORANDIL
     Indication: ANGINA PECTORIS
     Dosage: UNK
     Route: 065
  9. BOSENTAN [Concomitant]
     Active Substance: BOSENTAN
     Indication: RIGHT-TO-LEFT CARDIAC SHUNT
     Dosage: UNK
     Route: 065
  10. WARFARIN [Concomitant]
     Active Substance: WARFARIN
     Indication: POSTOPERATIVE THROMBOSIS
     Dosage: UNK
     Route: 065
  11. FUROSEMIDE. [Concomitant]
     Active Substance: FUROSEMIDE
     Indication: PRODUCT USED FOR UNKNOWN INDICATION
     Dosage: UNK
     Route: 065

REACTIONS (1)
  - Muscle haemorrhage [Unknown]
